FAERS Safety Report 20200709 (Version 2)
Quarter: 2022Q1

REPORT INFORMATION
  Report Type: Report from Study
  Country: US (occurrence: US)
  Receive Date: 20211217
  Receipt Date: 20220121
  Transmission Date: 20220423
  Serious: Yes (Hospitalization, Other)
  Sender: FDA-Public Use
  Company Number: US-UPSHER-SMITH LABORATORIES, LLC-2021USL00865

PATIENT
  Sex: Male

DRUGS (2)
  1. VIGADRONE [Suspect]
     Active Substance: VIGABATRIN
     Dosage: 10 ML, 2X/DAY
     Dates: start: 20211117
  2. VIGADRONE [Suspect]
     Active Substance: VIGABATRIN
     Dosage: 6 ML, 2X/DAY

REACTIONS (5)
  - Heart rate increased [Not Recovered/Not Resolved]
  - Paroxysmal sympathetic hyperactivity [Recovered/Resolved]
  - Urinary tract infection [Recovered/Resolved]
  - Seizure [Not Recovered/Not Resolved]
  - Respiration abnormal [Recovered/Resolved]

NARRATIVE: CASE EVENT DATE: 20210101
